FAERS Safety Report 18507307 (Version 1)
Quarter: 2020Q4

REPORT INFORMATION
  Report Type: Spontaneous
  Country: US (occurrence: US)
  Receive Date: 20201116
  Receipt Date: 20201116
  Transmission Date: 20210114
  Serious: No
  Sender: FDA-Public Use
  Company Number: None

PATIENT
  Age: 56 Year
  Sex: Female
  Weight: 93.15 kg

DRUGS (1)
  1. LETAIRIS [Suspect]
     Active Substance: AMBRISENTAN

REACTIONS (4)
  - Weight decreased [None]
  - Weight fluctuation [None]
  - Fluid retention [None]
  - Product prescribing error [None]

NARRATIVE: CASE EVENT DATE: 20201116
